FAERS Safety Report 4534992-7 (Version None)
Quarter: 2004Q4

REPORT INFORMATION
  Report Type: 
  Country: None (occurrence: None)
  Receive Date: 20041222
  Receipt Date: 20041216
  Transmission Date: 20050328
  Serious: Yes (Hospitalization)
  Sender: FDA-Public Use
  Company Number: US-BRISTOL-MYERS SQUIBB COMPANY-12797700

PATIENT
  Age: 50 Year
  Sex: Male

DRUGS (1)
  1. TAXOL [Suspect]
     Indication: CARCINOMA
     Dosage: LOADING DOSE
     Route: 042
     Dates: start: 20041208, end: 20041208

REACTIONS (3)
  - CONFUSIONAL STATE [None]
  - MENTAL STATUS CHANGES [None]
  - RENAL FAILURE [None]
